FAERS Safety Report 6597019-1 (Version None)
Quarter: 2010Q1

REPORT INFORMATION
  Report Type: 
  Country: None (occurrence: None)
  Receive Date: 20100223
  Receipt Date: 20100212
  Transmission Date: 20100710
  Serious: Yes (Other)
  Sender: FDA-Public Use
  Company Number: A0845495A

PATIENT
  Age: 31 Year
  Sex: Female

DRUGS (5)
  1. COMBIVIR [Suspect]
     Indication: ANTIRETROVIRAL THERAPY
     Route: 048
     Dates: start: 20090623
  2. KALETRA [Suspect]
     Indication: ANTIRETROVIRAL THERAPY
     Route: 048
     Dates: start: 20090623
  3. HEROIN [Suspect]
  4. METHADONE [Suspect]
     Dosage: 80MG PER DAY
  5. UNKNOWN ANTI-TUBERCULOSIS DRUGS [Suspect]

REACTIONS (2)
  - ABORTION SPONTANEOUS [None]
  - DRUG EXPOSURE DURING PREGNANCY [None]
